FAERS Safety Report 25745348 (Version 1)
Quarter: 2025Q3

REPORT INFORMATION
  Report Type: Spontaneous
  Country: US (occurrence: US)
  Receive Date: 20250901
  Receipt Date: 20250901
  Transmission Date: 20251020
  Serious: Yes (Other)
  Sender: pharmaAND
  Company Number: US-Pharmaand-2024001044

PATIENT
  Age: 20 Year
  Sex: Male

DRUGS (1)
  1. PEGASYS [Suspect]
     Active Substance: PEGINTERFERON ALFA-2A
     Indication: Hepatic cancer
     Dosage: 360 MCG EVERY TWO WEEKS BY INTRAVENOUS INFUSION
     Route: 042
     Dates: start: 202406, end: 20240906

REACTIONS (4)
  - Neutropenia [Unknown]
  - Tooth infection [Unknown]
  - Off label use [Recovered/Resolved]
  - Hepatic cancer [Recovered/Resolved]
